FAERS Safety Report 17403461 (Version 5)
Quarter: 2020Q2

REPORT INFORMATION
  Report Type: Spontaneous
  Country: JP (occurrence: JP)
  Receive Date: 20200211
  Receipt Date: 20200603
  Transmission Date: 20200713
  Serious: Yes (Hospitalization, Other)
  Sender: FDA-Public Use
  Company Number: JP-JNJFOC-20200200257

PATIENT
  Age: 81 Year
  Sex: Male
  Weight: 61 kg

DRUGS (5)
  1. RANDA [Concomitant]
     Active Substance: CISPLATIN
     Indication: PRODUCT USED FOR UNKNOWN INDICATION
     Dosage: STARTED BEFORE 2018
     Route: 041
  2. SUGLAT [Concomitant]
     Active Substance: IPRAGLIFLOZIN L-PROLINE
     Indication: PRODUCT USED FOR UNKNOWN INDICATION
     Route: 048
  3. NIFEDIPINE. [Concomitant]
     Active Substance: NIFEDIPINE
     Indication: PRODUCT USED FOR UNKNOWN INDICATION
     Route: 048
  4. DOCETAXEL. [Concomitant]
     Active Substance: DOCETAXEL
     Indication: PRODUCT USED FOR UNKNOWN INDICATION
     Route: 041
     Dates: start: 20181227
  5. ERLEADA [Suspect]
     Active Substance: APALUTAMIDE
     Indication: PROSTATE CANCER
     Route: 048
     Dates: start: 20191202, end: 20200128

REACTIONS (4)
  - Pyrexia [Recovered/Resolved]
  - Dysuria [Recovered/Resolved]
  - Pruritus [Recovered/Resolved]
  - Rash [Recovered/Resolved]

NARRATIVE: CASE EVENT DATE: 20200121
